FAERS Safety Report 4596792-1 (Version None)
Quarter: 2005Q1

REPORT INFORMATION
  Report Type: 
  Country: None (occurrence: None)
  Receive Date: 20050225
  Receipt Date: 20050211
  Transmission Date: 20050727
  Serious: Yes (Other)
  Sender: FDA-Public Use
  Company Number: 141371USA

PATIENT
  Age: 12 Year
  Sex: Female
  Weight: 38.1022 kg

DRUGS (1)
  1. PROPOFOL [Suspect]
     Dosage: 80 MILLIGRAM ONCE

REACTIONS (4)
  - AMNESIA [None]
  - BLINDNESS TRANSIENT [None]
  - DELAYED RECOVERY FROM ANAESTHESIA [None]
  - DIPLOPIA [None]
